FAERS Safety Report 26125494 (Version 1)
Quarter: 2025Q4

REPORT INFORMATION
  Report Type: Spontaneous
  Country: EU (occurrence: EU)
  Receive Date: 20251205
  Receipt Date: 20251205
  Transmission Date: 20260118
  Serious: Yes (Other)
  Sender: RANBAXY
  Company Number: None

PATIENT
  Age: 68 Year
  Sex: Male
  Weight: 90 kg

DRUGS (2)
  1. GEMCITABINE [Suspect]
     Active Substance: GEMCITABINE
     Indication: Product used for unknown indication
     Dosage: 2000 MILLIGRAM
     Route: 040
     Dates: start: 20211104, end: 20211104
  2. CARBOPLATIN [Suspect]
     Active Substance: CARBOPLATIN
     Indication: Product used for unknown indication
     Dosage: 450 MILLIGRAM
     Route: 040
     Dates: start: 20211104, end: 20211104

REACTIONS (1)
  - Jaundice [Recovered/Resolved with Sequelae]

NARRATIVE: CASE EVENT DATE: 20211129
